FAERS Safety Report 5618381-X (Version None)
Quarter: 2008Q1

REPORT INFORMATION
  Report Type: 
  Country: None (occurrence: None)
  Receive Date: 20080205
  Receipt Date: 20080205
  Transmission Date: 20080703
  Serious: Yes (Life-Threatening)
  Sender: FDA-Public Use
  Company Number: None

PATIENT
  Age: 59 Year
  Sex: Female
  Weight: 76.2043 kg

DRUGS (1)
  1. CYMBALTA [Suspect]
     Indication: DEPRESSION
     Dosage: 1 A DAY PO
     Route: 048
     Dates: start: 20050408, end: 20080205

REACTIONS (8)
  - ABDOMINAL PAIN UPPER [None]
  - ABNORMAL BEHAVIOUR [None]
  - BACK PAIN [None]
  - MUSCULOSKELETAL PAIN [None]
  - NECK PAIN [None]
  - PAROSMIA [None]
  - PHOTOPSIA [None]
  - SUICIDAL IDEATION [None]
